FAERS Safety Report 15597194 (Version 6)
Quarter: 2019Q1

REPORT INFORMATION
  Report Type: Spontaneous
  Country: FR (occurrence: FR)
  Receive Date: 20181108
  Receipt Date: 20190211
  Transmission Date: 20190417
  Serious: Yes (Death, Life-Threatening, Hospitalization, Other)
  Sender: FDA-Public Use
  Company Number: FR-TAIHO ONCOLOGY  INC-JPTT180254

PATIENT
  Age: 80 Year
  Sex: Male
  Weight: 66 kg

DRUGS (1)
  1. LONSURF [Suspect]
     Active Substance: TIPIRACIL HYDROCHLORIDE\TRIFLURIDINE
     Indication: COLORECTAL CANCER METASTATIC
     Dosage: 60 MG (UNKMG/M2), ON DAYS 1-5 AND 8-12 OF EACH 28-DAY CYCLE
     Route: 048
     Dates: start: 20180219, end: 20180302

REACTIONS (11)
  - Vomiting [Unknown]
  - C-reactive protein increased [Unknown]
  - Creatinine renal clearance decreased [Unknown]
  - Leukopenia [Unknown]
  - Neutropenia [Fatal]
  - Pseudomonal sepsis [Fatal]
  - Nausea [Unknown]
  - Thrombocytopenia [Unknown]
  - Diarrhoea [Unknown]
  - Anaemia [Unknown]
  - Neutropenic colitis [Fatal]

NARRATIVE: CASE EVENT DATE: 20180306
